FAERS Safety Report 5147813-9 (Version None)
Quarter: 2006Q4

REPORT INFORMATION
  Report Type: 
  Country: None (occurrence: None)
  Receive Date: 20061110
  Receipt Date: 20061028
  Transmission Date: 20070319
  Serious: Yes (Other)
  Sender: FDA-Public Use
  Company Number: PHEH2006US13520

PATIENT

DRUGS (1)
  1. ZOMETA [Suspect]

REACTIONS (3)
  - HERPES ZOSTER [None]
  - HYPERSENSITIVITY [None]
  - MULTIPLE MYELOMA [None]
